FAERS Safety Report 7382026-1 (Version None)
Quarter: 2011Q1

REPORT INFORMATION
  Report Type: 
  Country: None (occurrence: None)
  Receive Date: 20110329
  Receipt Date: 20110321
  Transmission Date: 20110831
  Serious: Yes (Hospitalization, Congenital Anomaly, Other)
  Sender: FDA-Public Use
  Company Number: FR-PFIZER INC-2011053893

PATIENT
  Age: 30 Year
  Sex: Male
  Weight: 53 kg

DRUGS (13)
  1. GENOTONORM [Suspect]
     Dosage: 0.6 MG, 1X/DAY
     Route: 058
     Dates: end: 20110101
  2. EUROBIOL [Concomitant]
     Dosage: 9 TO 10 DF/DAY
     Dates: start: 20010101
  3. COENZYME Q10 [Concomitant]
     Dosage: UP TO 10 DF/DAY
     Route: 048
     Dates: start: 20010101
  4. SPECIAFOLDINE [Concomitant]
     Dosage: 2 DF, 1X/DAY
  5. OROCAL VITAMIN D [Concomitant]
  6. VITAMIN B-12 [Concomitant]
     Dosage: 1 DF, WEEKLY
     Route: 030
  7. VITAMIN D [Concomitant]
  8. EXJADE [Concomitant]
     Dosage: UNK
     Dates: start: 20090401
  9. RAMIPRIL [Concomitant]
     Indication: MITOCHONDRIAL CYTOPATHY
     Dosage: 2.5 MG, 2X/DAY
  10. CREON [Concomitant]
  11. GENOTONORM [Suspect]
     Indication: GROWTH HORMONE DEFICIENCY
     Dosage: 0.1 MG, 1X/DAY
     Route: 058
     Dates: start: 20100720
  12. GENOTONORM [Suspect]
     Dosage: 0.3 MG, 1X/DAY
     Route: 058
     Dates: start: 20100901
  13. KREDEX [Concomitant]
     Dosage: 12.5 MG, 2X/DAY

REACTIONS (1)
  - PULMONARY ARTERIAL HYPERTENSION [None]
